FAERS Safety Report 5209623-3 (Version None)
Quarter: 2007Q1

REPORT INFORMATION
  Report Type: 
  Country: None (occurrence: None)
  Receive Date: 20070111
  Receipt Date: 20061109
  Transmission Date: 20070707
  Serious: Yes (Other)
  Sender: FDA-Public Use
  Company Number: 2006PV024886

PATIENT
  Age: 39 Year
  Sex: Female

DRUGS (4)
  1. BYETTA [Suspect]
     Indication: DIABETES MELLITUS NON-INSULIN-DEPENDENT
     Dosage: 5 MCG BID SC ; 5 MCG QD SC
     Route: 058
     Dates: start: 20061017, end: 20061027
  2. BYETTA [Suspect]
     Indication: DIABETES MELLITUS NON-INSULIN-DEPENDENT
     Dosage: 5 MCG BID SC ; 5 MCG QD SC
     Route: 058
     Dates: start: 20061106
  3. METFORMIN HCL [Concomitant]
  4. AMARYL [Concomitant]

REACTIONS (1)
  - PANCREATITIS [None]
